FAERS Safety Report 21362193 (Version 2)
Quarter: 2025Q1

REPORT INFORMATION
  Report Type: Report from Study
  Country: FR (occurrence: FR)
  Receive Date: 20220922
  Receipt Date: 20250107
  Transmission Date: 20250408
  Serious: No
  Sender: KYOWA
  Company Number: FR-KYOWAKIRIN-2022BKK014688

PATIENT

DRUGS (8)
  1. BUROSUMAB [Suspect]
     Active Substance: BUROSUMAB
     Indication: Hereditary hypophosphataemic rickets
     Dosage: 50 MG, 1X/2 WEEKS
     Route: 065
     Dates: start: 20180808, end: 20200527
  2. BUROSUMAB [Suspect]
     Active Substance: BUROSUMAB
     Dosage: 20 MG, SINGLE
     Route: 065
     Dates: start: 20180530, end: 20180530
  3. BUROSUMAB [Suspect]
     Active Substance: BUROSUMAB
     Dosage: 30 MG, 1X/2 WEEKS
     Route: 065
     Dates: start: 20180613, end: 20180807
  4. BUROSUMAB [Suspect]
     Active Substance: BUROSUMAB
     Dosage: 60 MG, 1X/2 WEEKS
     Route: 065
     Dates: start: 20200528, end: 20210113
  5. BUROSUMAB [Suspect]
     Active Substance: BUROSUMAB
     Dosage: 70 MG, 1X/2 WEEKS
     Route: 065
     Dates: start: 20210114, end: 20240214
  6. BUROSUMAB [Suspect]
     Active Substance: BUROSUMAB
     Dosage: 90 MG, 1X/2 WEEKS
     Route: 065
     Dates: start: 20240215
  7. CHOLECALCIFEROL [Concomitant]
     Active Substance: CHOLECALCIFEROL
     Indication: Hereditary hypophosphataemic rickets
     Dosage: UNK, 1X/3MONTHS (1 VIAL EVERY 3 MONTHS)
     Route: 065
     Dates: start: 20121101, end: 20201109
  8. CHOLECALCIFEROL [Concomitant]
     Active Substance: CHOLECALCIFEROL
     Route: 065
     Dates: start: 20201110

REACTIONS (1)
  - Testicular torsion [Recovered/Resolved]

NARRATIVE: CASE EVENT DATE: 20200101
